FAERS Safety Report 16957071 (Version 2)
Quarter: 2019Q4

REPORT INFORMATION
  Report Type: Spontaneous
  Country: US (occurrence: US)
  Receive Date: 20191024
  Receipt Date: 20191128
  Transmission Date: 20200122
  Serious: Yes (Life-Threatening, Hospitalization, Disabling)
  Sender: FDA-Public Use
  Company Number: US-ROCHE-2440711

PATIENT
  Age: 36 Year
  Sex: Male
  Weight: 74.63 kg

DRUGS (3)
  1. RITUXAN [Suspect]
     Active Substance: RITUXIMAB
     Indication: MULTIPLE SCLEROSIS RELAPSE
     Dosage: HIS LAST RITUXIMAB INFUSION WAS 24 OR 25 JUL/2019.
     Route: 042
     Dates: start: 2018
  2. RITUXAN [Suspect]
     Active Substance: RITUXIMAB
     Route: 042
     Dates: start: 201712, end: 20190715
  3. AMERGE [Concomitant]
     Active Substance: NARATRIPTAN HYDROCHLORIDE
     Indication: MIGRAINE
     Route: 048

REACTIONS (10)
  - Intestinal ischaemia [Unknown]
  - Neutropenia [Recovered/Resolved]
  - Large intestine perforation [Unknown]
  - Gastrointestinal injury [Unknown]
  - Peritonitis [Unknown]
  - Abdominal abscess [Recovered/Resolved]
  - Off label use [Unknown]
  - Small intestine operation [Unknown]
  - Leukocytosis [Recovered/Resolved]
  - Abdominal pain [Unknown]

NARRATIVE: CASE EVENT DATE: 20190815
